FAERS Safety Report 13805776 (Version 7)
Quarter: 2017Q4

REPORT INFORMATION
  Report Type: Report from Study
  Country: US (occurrence: US)
  Receive Date: 20170728
  Receipt Date: 20171116
  Transmission Date: 20180320
  Serious: Yes (Hospitalization, Other)
  Sender: FDA-Public Use
  Company Number: US-BIOGEN-2017BI00437248

PATIENT
  Sex: Male

DRUGS (1)
  1. ZINBRYTA [Suspect]
     Active Substance: DACLIZUMAB
     Indication: MULTIPLE SCLEROSIS
     Route: 058

REACTIONS (4)
  - Impaired gastric emptying [Unknown]
  - Blood alkaline phosphatase increased [Recovered/Resolved]
  - Immune-mediated adverse reaction [Unknown]
  - Ileus [Recovered/Resolved]
